FAERS Safety Report 5655731-2 (Version None)
Quarter: 2008Q1

REPORT INFORMATION
  Report Type: 
  Country: None (occurrence: None)
  Receive Date: 20080307
  Receipt Date: 20080226
  Transmission Date: 20080703
  Serious: Yes (Other)
  Sender: FDA-Public Use
  Company Number: FR-PFIZER INC-2007038346

PATIENT
  Sex: Male

DRUGS (5)
  1. CHANTIX [Suspect]
     Indication: SMOKING CESSATION THERAPY
     Route: 048
     Dates: start: 20070417, end: 20070423
  2. VIRAMUNE [Interacting]
     Indication: HIV TEST POSITIVE
     Route: 048
     Dates: start: 20050101, end: 20070422
  3. ALL OTHER THERAPEUTIC PRODUCTS [Concomitant]
     Route: 048
  4. DIDANOSINE [Concomitant]
     Indication: HIV INFECTION
     Route: 048
  5. EMTRICITABINE [Concomitant]

REACTIONS (5)
  - DRUG INTERACTION [None]
  - FACE OEDEMA [None]
  - RASH [None]
  - TOXIC SKIN ERUPTION [None]
  - URTICARIA [None]
